FAERS Safety Report 24849398 (Version 1)
Quarter: 2025Q1

REPORT INFORMATION
  Report Type: Report from Study
  Country: CA (occurrence: CA)
  Receive Date: 20250116
  Receipt Date: 20250116
  Transmission Date: 20250408
  Serious: No
  Sender: ROCHE
  Company Number: CA-ROCHE-10000179267

PATIENT
  Age: 53 Year
  Sex: Female

DRUGS (3)
  1. OCREVUS [Suspect]
     Active Substance: OCRELIZUMAB
     Indication: Relapsing-remitting multiple sclerosis
     Dosage: 300 MG AT DAY 0 AND 14, THEN 600 MG EVERY 6 MONTHS
     Route: 042
     Dates: start: 20190710
  2. TYLENOL [Concomitant]
     Active Substance: ACETAMINOPHEN
  3. BENYLIN [Concomitant]
     Active Substance: DIPHENHYDRAMINE HYDROCHLORIDE

REACTIONS (10)
  - Back pain [Recovering/Resolving]
  - Muscular weakness [Unknown]
  - Pain in extremity [Recovering/Resolving]
  - Gait disturbance [Unknown]
  - Musculoskeletal pain [Recovering/Resolving]
  - Myalgia [Recovering/Resolving]
  - Influenza [Unknown]
  - Infection [Unknown]
  - Nasopharyngitis [Unknown]
  - Nerve compression [Unknown]

NARRATIVE: CASE EVENT DATE: 20240101
